FAERS Safety Report 15924754 (Version 3)
Quarter: 2019Q2

REPORT INFORMATION
  Report Type: Spontaneous
  Country: US (occurrence: US)
  Receive Date: 20190205
  Receipt Date: 20190626
  Transmission Date: 20190711
  Serious: No
  Sender: FDA-Public Use
  Company Number: US-ACTELION-A-NJ2018-184142

PATIENT
  Age: 73 Year
  Sex: Male
  Weight: 83.9 kg

DRUGS (5)
  1. UPTRAVI [Suspect]
     Active Substance: SELEXIPAG
     Indication: PULMONARY HYPERTENSION
     Dosage: 200 MCG, BID
     Route: 048
  2. UPTRAVI [Suspect]
     Active Substance: SELEXIPAG
     Dosage: 400 MCG, BID
     Route: 048
     Dates: end: 201906
  3. REVATIO [Concomitant]
     Active Substance: SILDENAFIL CITRATE
  4. ELIQUIS [Concomitant]
     Active Substance: APIXABAN
  5. TADALAFIL. [Concomitant]
     Active Substance: TADALAFIL

REACTIONS (6)
  - Product dose omission [Unknown]
  - Diarrhoea [Unknown]
  - Visual impairment [Unknown]
  - Therapy change [Unknown]
  - Functional gastrointestinal disorder [Unknown]
  - Gastrointestinal disorder [Unknown]

NARRATIVE: CASE EVENT DATE: 201812
